FAERS Safety Report 20523665 (Version 1)
Quarter: 2022Q1

REPORT INFORMATION
  Report Type: Report from Study
  Country: CO (occurrence: CO)
  Receive Date: 20220228
  Receipt Date: 20220228
  Transmission Date: 20220423
  Serious: Yes (Other)
  Sender: FDA-Public Use
  Company Number: CO-ABBVIE-22K-036-4294230-00

PATIENT
  Age: 35 Year
  Sex: Male
  Weight: 80 kg

DRUGS (1)
  1. HUMIRA [Suspect]
     Active Substance: ADALIMUMAB
     Indication: Ankylosing spondylitis
     Route: 058
     Dates: start: 20190808, end: 20220214

REACTIONS (6)
  - Balanoposthitis [Recovering/Resolving]
  - Penile exfoliation [Not Recovered/Not Resolved]
  - Penile exfoliation [Recovered/Resolved]
  - Penile burning sensation [Not Recovered/Not Resolved]
  - Penile burning sensation [Recovered/Resolved]
  - Pain [Unknown]

NARRATIVE: CASE EVENT DATE: 20200101
